FAERS Safety Report 5622193-0 (Version None)
Quarter: 2008Q1

REPORT INFORMATION
  Report Type: 
  Country: None (occurrence: None)
  Receive Date: 20080211
  Receipt Date: 20080207
  Transmission Date: 20080703
  Serious: Yes (Life-Threatening, Hospitalization, Disabling, Other)
  Sender: FDA-Public Use
  Company Number: GB-ASTRAZENECA-2004GB02557

PATIENT
  Age: 26485 Day
  Sex: Male
  Weight: 62 kg

DRUGS (12)
  1. GEFITINIB [Suspect]
     Indication: NON-SMALL CELL LUNG CANCER
     Route: 048
     Dates: start: 20040720, end: 20040914
  2. GEFITINIB [Suspect]
     Indication: METASTASES TO LIVER
     Route: 048
     Dates: start: 20040720, end: 20040914
  3. DICLOFENAC [Concomitant]
     Indication: PAIN
     Route: 048
     Dates: end: 20040905
  4. ATENOLOL [Concomitant]
     Indication: ANGINA PECTORIS
     Route: 048
     Dates: start: 20040810, end: 20040915
  5. FUROSEMIDE [Concomitant]
     Indication: ANGINA PECTORIS
     Route: 048
     Dates: end: 20040914
  6. LANSOPRAZOLE [Concomitant]
     Indication: DYSPEPSIA
     Route: 048
     Dates: start: 20040615, end: 20040915
  7. AMOXICILLIN [Concomitant]
     Indication: INFECTION
     Route: 048
     Dates: start: 20040905, end: 20040909
  8. FERROUS SULFATE TAB [Concomitant]
     Indication: HAEMOGLOBIN DECREASED
     Route: 048
     Dates: start: 20040905, end: 20040916
  9. ASPIRIN [Concomitant]
     Indication: ANGINA PECTORIS
     Route: 048
     Dates: start: 20040810
  10. GTN SPRAY [Concomitant]
     Indication: ANGINA PECTORIS
     Dosage: 2 SPRAYS AS REQUIRED
     Dates: start: 20040810
  11. ACETAMINOPHEN [Concomitant]
     Indication: PAIN
     Route: 048
     Dates: start: 20040905
  12. ORAMORPH SR [Concomitant]
     Indication: PAIN
     Dosage: 5MG (2.5ML) AS REQUIRED
     Route: 048

REACTIONS (2)
  - MYOCARDIAL INFARCTION [None]
  - NEUTROPENIC SEPSIS [None]
